FAERS Safety Report 6633305-4 (Version None)
Quarter: 2010Q1

REPORT INFORMATION
  Report Type: 
  Country: None (occurrence: None)
  Receive Date: 20100312
  Receipt Date: 20090508
  Transmission Date: 20100710
  Serious: No
  Sender: FDA-Public Use
  Company Number: US-ABBOTT-09P-163-0571516-00

PATIENT
  Sex: Female

DRUGS (2)
  1. ERYPED [Suspect]
     Indication: DRUG USE FOR UNKNOWN INDICATION
     Dosage: 400MG/5ML
     Route: 050
     Dates: start: 20090430, end: 20090505
  2. KCL IN INTRAVENOUS NS [Concomitant]
     Indication: DRUG USE FOR UNKNOWN INDICATION
     Dosage: 20 MEQ IN 100 ML NS OVER 1H X 4

REACTIONS (2)
  - DRUG LABEL CONFUSION [None]
  - UNDERDOSE [None]
